FAERS Safety Report 9204938 (Version 1)
Quarter: 2013Q2

REPORT INFORMATION
  Report Type: Spontaneous
  Country: US (occurrence: US)
  Receive Date: 20130402
  Receipt Date: 20130402
  Transmission Date: 20140414
  Serious: Yes (Other)
  Sender: FDA-Public Use
  Company Number: US-BANPHARM-20130983

PATIENT
  Age: 71 Year
  Sex: Female
  Weight: 65.77 kg

DRUGS (5)
  1. ALEVE LIQUID GELS 220MG [Suspect]
     Indication: ARTHRITIS
     Dosage: 1 DF, PRN,
     Route: 048
     Dates: end: 201203
  2. EXTRA STRENGTH TYLENOL [Concomitant]
  3. CITRACAL MAXIMUM CAPLETS [Concomitant]
  4. RECLAST [Concomitant]
  5. PREDNISONE [Concomitant]

REACTIONS (2)
  - Renal failure [Recovered/Resolved]
  - Blood creatine increased [Recovering/Resolving]
